FAERS Safety Report 6100887-0 (Version None)
Quarter: 2009Q1

REPORT INFORMATION
  Report Type: 
  Country: None (occurrence: None)
  Receive Date: 20090304
  Receipt Date: 20090227
  Transmission Date: 20090719
  Serious: No
  Sender: FDA-Public Use
  Company Number: US-JNJFOC-20090300413

PATIENT
  Sex: Female
  Weight: 58.97 kg

DRUGS (5)
  1. FENTANYL TRANSDERMAL SYSTEM [Suspect]
     Route: 062
  2. FENTANYL TRANSDERMAL SYSTEM [Suspect]
     Indication: BACK PAIN
     Dosage: ONE 100UG/HR AND ONE 75UG/HR PATCH
     Route: 062
  3. UNSPECIFIED MEDICATIONS [Concomitant]
     Indication: DRUG USE FOR UNKNOWN INDICATION
     Route: 065
  4. FENTANYL TRANSDERMAL SYSTEM [Concomitant]
     Route: 062
  5. FENTANYL TRANSDERMAL SYSTEM [Concomitant]
     Dosage: ONE 100 UG/HR AND ONE 75 UG/HR PATCH
     Route: 062

REACTIONS (1)
  - EXPIRED DRUG ADMINISTERED [None]
